FAERS Safety Report 5514626-5 (Version None)
Quarter: 2007Q4

REPORT INFORMATION
  Report Type: 
  Country: None (occurrence: None)
  Receive Date: 20071113
  Receipt Date: 20071108
  Transmission Date: 20080405
  Serious: Yes (Other)
  Sender: FDA-Public Use
  Company Number: GB-ALLERGAN-0712358US

PATIENT
  Sex: Female

DRUGS (2)
  1. ALPHAGAN [Suspect]
     Indication: GLAUCOMA
     Route: 047
     Dates: start: 20070401, end: 20071001
  2. XALATAN [Concomitant]
     Indication: GLAUCOMA
     Route: 047
     Dates: start: 20020101

REACTIONS (2)
  - AGEUSIA [None]
  - ANOSMIA [None]
